FAERS Safety Report 6958258-0 (Version None)
Quarter: 2010Q3

REPORT INFORMATION
  Report Type: 
  Country: None (occurrence: None)
  Receive Date: 20100827
  Receipt Date: 20100827
  Transmission Date: 20110219
  Serious: Yes (Other)
  Sender: FDA-Public Use
  Company Number: None

PATIENT
  Age: 82 Year
  Sex: Male
  Weight: 80.7403 kg

DRUGS (12)
  1. LEXAPRO [Suspect]
     Indication: DEPRESSION
     Dosage: 5MGM 1X DAILY ORAL 10MGM 1X DAILY ORAL
     Route: 048
     Dates: start: 20100708, end: 20100721
  2. LEXAPRO [Suspect]
     Indication: DEPRESSION
     Dosage: 5MGM 1X DAILY ORAL 10MGM 1X DAILY ORAL
     Route: 048
     Dates: start: 20100721, end: 20100807
  3. CARDURA [Concomitant]
  4. TENORMIN [Concomitant]
  5. CRESTOR [Concomitant]
  6. NEXIUM [Concomitant]
  7. ASPIRIN [Concomitant]
  8. VALIUM [Concomitant]
  9. FISH OIL [Concomitant]
  10. CENTRUM SILVER [Concomitant]
  11. VITAMIN B-12 [Concomitant]
  12. VIT E [Concomitant]

REACTIONS (3)
  - BREAST SWELLING [None]
  - BREAST TENDERNESS [None]
  - RESTLESS LEGS SYNDROME [None]
